FAERS Safety Report 10037187 (Version 1)
Quarter: 2014Q1

REPORT INFORMATION
  Report Type: Spontaneous
  Country: GB (occurrence: None)
  Receive Date: 20140324
  Receipt Date: 20140324
  Transmission Date: 20141002
  Serious: Yes (Death, Other)
  Sender: FDA-Public Use
  Company Number: 2014013618

PATIENT
  Age: 41 Year
  Sex: Female
  Weight: 40 kg

DRUGS (7)
  1. FRAGMIN [Suspect]
     Indication: PROPHYLAXIS
     Dosage: 2500 UNITS 1X/DAY
     Route: 058
     Dates: start: 201309, end: 20140113
  2. LANSOPRAZOLE (LANSOPRAZOLE) [Concomitant]
  3. ONDANSETRON (ONSANSETRON) [Concomitant]
  4. PREGABALIN (PREGABALIN) [Concomitant]
  5. LEVOMEPRAZOMAZINE (LEVOMEPROMAZINE) [Concomitant]
  6. MIRTAZAPINE (MIRTAZAPINE) [Concomitant]
  7. FENTANYL (FENTANYL) [Concomitant]

REACTIONS (3)
  - Malignant neoplasm progression [None]
  - Metastatic gastric cancer [None]
  - Deep vein thrombosis [None]
